FAERS Safety Report 11591392 (Version 5)
Quarter: 2017Q2

REPORT INFORMATION
  Report Type: Spontaneous
  Country: CH (occurrence: CH)
  Receive Date: 20151005
  Receipt Date: 20170526
  Transmission Date: 20170829
  Serious: Yes (Other)
  Sender: FDA-Public Use
  Company Number: CH-AMGEN-CHESP2015101859

PATIENT
  Age: 77 Year
  Sex: Female

DRUGS (3)
  1. VITAMIN D [Concomitant]
     Active Substance: CHOLECALCIFEROL
     Dosage: 800-1000 IU/DAY
  2. CALCIUM [Concomitant]
     Active Substance: CALCIUM
     Dosage: 1000-1500 MG, QD
  3. PROLIA [Suspect]
     Active Substance: DENOSUMAB
     Indication: OSTEOPOROSIS POSTMENOPAUSAL
     Dosage: 60 MG, Q6MO FOR 4 TO 6 DOSES
     Route: 065
     Dates: start: 201102, end: 201306

REACTIONS (3)
  - Rebound effect [Unknown]
  - Rib fracture [Unknown]
  - Pathological fracture [Unknown]

NARRATIVE: CASE EVENT DATE: 2014
